FAERS Safety Report 8789439 (Version 1)
Quarter: 2012Q4

REPORT INFORMATION
  Report Type: Spontaneous
  Country: RU (occurrence: None)
  Receive Date: 20120906
  Receipt Date: 20120906
  Transmission Date: 20130627
  Serious: Yes (Other)
  Sender: FDA-Public Use
  Company Number: RU-1193925

PATIENT
  Sex: Female

DRUGS (1)
  1. AZOPT 1% [Suspect]
     Route: 047

REACTIONS (5)
  - Dyspnoea [None]
  - Asphyxia [None]
  - Bronchospasm [None]
  - Cardiac disorder [None]
  - Feeling abnormal [None]
